FAERS Safety Report 8188525-7 (Version None)
Quarter: 2012Q1

REPORT INFORMATION
  Report Type: 
  Country: None (occurrence: None)
  Receive Date: 20120306
  Receipt Date: 20120229
  Transmission Date: 20120608
  Serious: No
  Sender: FDA-Public Use
  Company Number: CHPA2012JP001816

PATIENT

DRUGS (1)
  1. LAMISIL [Suspect]
     Dosage: UNK DF, ONCE/SINGLE
     Route: 047
     Dates: start: 20120117, end: 20120117

REACTIONS (2)
  - INCORRECT ROUTE OF DRUG ADMINISTRATION [None]
  - EYE SWELLING [None]
